FAERS Safety Report 6806942-1 (Version None)
Quarter: 2010Q2

REPORT INFORMATION
  Report Type: 
  Country: None (occurrence: None)
  Receive Date: 20100628
  Receipt Date: 20100628
  Transmission Date: 20101027
  Serious: Yes (Hospitalization)
  Sender: FDA-Public Use
  Company Number: None

PATIENT
  Age: 26 Year
  Sex: Male
  Weight: 254.9 kg

DRUGS (2)
  1. KETOROLAC TROMETHAMINE [Suspect]
     Indication: PAIN IN EXTREMITY
     Dosage: 60 MG ONCE IM
     Route: 030
     Dates: start: 20100403, end: 20100403
  2. NAPROXEN [Suspect]
     Indication: PAIN IN EXTREMITY
     Dosage: 500 MG BID PO
     Route: 048
     Dates: start: 20100403, end: 20100407

REACTIONS (2)
  - RENAL FAILURE ACUTE [None]
  - UPPER RESPIRATORY TRACT INFECTION [None]
